FAERS Safety Report 8803426 (Version 3)
Quarter: 2012Q4

REPORT INFORMATION
  Report Type: 
  Country: US (occurrence: US)
  Receive Date: 20120924
  Receipt Date: 20121130
  Transmission Date: 20130627
  Serious: Yes (Hospitalization, Disabling, Other)
  Sender: FDA-Public Use
  Company Number: US-009507513-1103USA00942

PATIENT

DRUGS (7)
  1. FOSAMAX [Suspect]
     Indication: OSTEOPOROSIS
     Dosage: 10 mg, qd
     Route: 048
     Dates: start: 19990430, end: 20010411
  2. FOSAMAX [Suspect]
     Dosage: 70 mg, qw
     Route: 048
     Dates: start: 20010411, end: 20060528
  3. FOSAMAX [Suspect]
     Indication: OSTEOPOROSIS
     Route: 048
  4. CALCIUM (UNSPECIFIED) [Concomitant]
     Dosage: 600 mg, bid
     Dates: start: 1999
  5. VITAMINS (UNSPECIFIED) [Concomitant]
     Dosage: 500 mg, qd
     Dates: start: 1992
  6. OMEGA-3 [Concomitant]
     Dosage: 550 mg, qd
     Dates: start: 1999
  7. FOSAMAX PLUS D [Suspect]
     Dosage: 70 -2800 mg, UNK
     Route: 048
     Dates: start: 20060607, end: 20060825

REACTIONS (27)
  - Fracture [Unknown]
  - Osteoporosis [Unknown]
  - Stress fracture [Unknown]
  - Femur fracture [Unknown]
  - Respiratory failure [Unknown]
  - Low turnover osteopathy [Unknown]
  - Open reduction of fracture [Unknown]
  - Thrombosis [Unknown]
  - Femur fracture [Unknown]
  - Sinusitis [Unknown]
  - Paraesthesia [Unknown]
  - Dyspnoea [Unknown]
  - Scoliosis [Unknown]
  - Fatigue [Unknown]
  - Pyrexia [Unknown]
  - Deep vein thrombosis [Unknown]
  - Anaemia [Unknown]
  - Hyperproteinaemia [Unknown]
  - Hyperalbuminaemia [Unknown]
  - Hypercalcaemia [Unknown]
  - Ligament sprain [Unknown]
  - Premature menopause [Unknown]
  - Haemorrhoids [Unknown]
  - Diverticulum [Unknown]
  - Dyspnoea exertional [Unknown]
  - Pain in extremity [Unknown]
  - Constipation [Unknown]
